FAERS Safety Report 8594197-X (Version None)
Quarter: 2012Q3

REPORT INFORMATION
  Report Type: 
  Country: None (occurrence: None)
  Receive Date: 20120814
  Receipt Date: 20120809
  Transmission Date: 20120928
  Serious: Yes (Death, Hospitalization)
  Sender: FDA-Public Use
  Company Number: PHHO2011US05095

PATIENT
  Sex: Female
  Weight: 61 kg

DRUGS (12)
  1. VANCOMYCIN [Suspect]
     Dosage: 1 G, Q12H
     Dates: start: 20110316
  2. LOVENOX [Concomitant]
  3. AFINITOR [Suspect]
     Dosage: UNK
  4. XANAX [Concomitant]
     Indication: ANXIETY
  5. BENADRYL [Concomitant]
     Indication: SWOLLEN TONGUE
  6. DUONEB [Concomitant]
  7. PROTONIX [Concomitant]
  8. METOPROLOL [Concomitant]
  9. AFINITOR [Suspect]
     Indication: BREAST CANCER METASTATIC
     Dosage: CODE NOT BROKEN
     Route: 048
     Dates: start: 20101223, end: 20110318
  10. VICODIN [Concomitant]
  11. PACLITAXEL [Suspect]
     Indication: BREAST CANCER METASTATIC
     Dosage: 142 MG
     Route: 042
     Dates: start: 20101223, end: 20110303
  12. COMPARATOR TRASTUZUMAB [Suspect]
     Indication: BREAST CANCER METASTATIC
     Dosage: 137 MG
     Route: 042
     Dates: start: 20101223, end: 20110310

REACTIONS (11)
  - HYPOXIA [None]
  - PNEUMONIA [None]
  - OEDEMA [None]
  - DYSPNOEA [None]
  - ASTHENIA [None]
  - RENAL FAILURE ACUTE [None]
  - MULTI-ORGAN FAILURE [None]
  - ESCHERICHIA INFECTION [None]
  - PYREXIA [None]
  - UROSEPSIS [None]
  - TACHYCARDIA [None]
